FAERS Safety Report 20530134 (Version 1)
Quarter: 2022Q1

REPORT INFORMATION
  Report Type: Spontaneous
  Country: DK (occurrence: DK)
  Receive Date: 20220301
  Receipt Date: 20220301
  Transmission Date: 20220424
  Serious: Yes (Other)
  Sender: FDA-Public Use
  Company Number: None

PATIENT
  Age: 74 Year
  Sex: Male

DRUGS (1)
  1. PREDNISOLONE [Suspect]
     Active Substance: PREDNISOLONE
     Indication: Rheumatoid arthritis
     Dosage: DOSAGE: VARYING DOSE BETWEEN 50 AND 100 MG
     Route: 048
     Dates: start: 20170827

REACTIONS (10)
  - Insomnia [Unknown]
  - Oedema [Unknown]
  - Cushingoid [Unknown]
  - Diabetes mellitus [Unknown]
  - Hypertension [Unknown]
  - Confusional state [Unknown]
  - Skin fragility [Unknown]
  - Skin discolouration [Unknown]
  - Hair growth abnormal [Unknown]
  - Restlessness [Unknown]

NARRATIVE: CASE EVENT DATE: 20180101
